FAERS Safety Report 5022108-2 (Version None)
Quarter: 2006Q2

REPORT INFORMATION
  Report Type: 
  Country: None (occurrence: None)
  Receive Date: 20060605
  Receipt Date: 20060518
  Transmission Date: 20061013
  Serious: Yes (Hospitalization)
  Sender: FDA-Public Use
  Company Number: S06-FRA-02007-01

PATIENT
  Age: 49 Year
  Sex: Male

DRUGS (5)
  1. SEROPLEX (ESCITALOPRAM) [Suspect]
     Dosage: 5 MG QD PO
     Route: 048
     Dates: start: 20060408
  2. SEROPLEX (ESCITALOPRAM) [Suspect]
     Dosage: 10 MG QD PO
     Route: 048
     Dates: start: 20060321, end: 20060407
  3. PREVISCAN (FLUINDIONE) [Suspect]
     Indication: PHLEBITIS
     Dosage: 20 MG QD PO
     Route: 048
     Dates: start: 20060324, end: 20060407
  4. PRAZEPAM [Concomitant]
  5. INNOHEP [Concomitant]

REACTIONS (5)
  - DIARRHOEA [None]
  - DRUG INTERACTION [None]
  - HAEMOGLOBIN DECREASED [None]
  - PHLEBITIS [None]
  - RECTAL HAEMORRHAGE [None]
